FAERS Safety Report 9164744 (Version 1)
Quarter: 2013Q1

REPORT INFORMATION
  Report Type: Spontaneous
  Country: US (occurrence: None)
  Receive Date: 20130313
  Receipt Date: 20130313
  Transmission Date: 20140127
  Serious: No
  Sender: FDA-Public Use
  Company Number: None

PATIENT
  Age: 21 Year
  Sex: Male
  Weight: 79.38 kg

DRUGS (3)
  1. AMBIEN [Suspect]
     Route: 048
     Dates: start: 20130301
  2. RESTORIL [Suspect]
     Route: 048
  3. SONATA [Suspect]
     Route: 048
     Dates: start: 20130303

REACTIONS (1)
  - Headache [None]
